FAERS Safety Report 14332570 (Version 1)
Quarter: 2017Q4

REPORT INFORMATION
  Report Type: Spontaneous
  Country: US (occurrence: US)
  Receive Date: 20171227
  Receipt Date: 20171227
  Transmission Date: 20180321
  Serious: Yes (Hospitalization)
  Sender: FDA-Public Use
  Company Number: None

PATIENT
  Age: 59 Year
  Sex: Male

DRUGS (4)
  1. CAPECITABINE TAB 500MG [Suspect]
     Active Substance: CAPECITABINE
     Indication: COLON CANCER
     Dosage: FREQUENCY - BIX X 14 DAYS
     Route: 048
     Dates: start: 201709
  2. FENOFIBRATE. [Concomitant]
     Active Substance: FENOFIBRATE
  3. GRANISETRON [Concomitant]
     Active Substance: GRANISETRON
  4. LISINOPRIL. [Concomitant]
     Active Substance: LISINOPRIL

REACTIONS (2)
  - Hospitalisation [None]
  - Malaise [None]

NARRATIVE: CASE EVENT DATE: 20171221
